FAERS Safety Report 8766543 (Version 1)
Quarter: 2012Q4

REPORT INFORMATION
  Report Type: 
  Country: CN (occurrence: CN)
  Receive Date: 20120915
  Receipt Date: 20120915
  Transmission Date: 20130627
  Serious: Yes (Other)
  Sender: FDA-Public Use
  Company Number: CN-ASTRAZENECA-2012SE66877

PATIENT
  Age: 9022 Day
  Sex: Female
  Weight: 75 kg

DRUGS (2)
  1. LOSEC [Suspect]
     Indication: ALCOHOL POISONING
     Route: 042
     Dates: start: 20110816, end: 20110816
  2. GLUCOSE [Suspect]
     Route: 042
     Dates: start: 20110816, end: 20110816

REACTIONS (1)
  - Anaphylactoid reaction [Recovering/Resolving]
